FAERS Safety Report 14913285 (Version 3)
Quarter: 2018Q3

REPORT INFORMATION
  Report Type: Spontaneous
  Country: US (occurrence: US)
  Receive Date: 20180518
  Receipt Date: 20180806
  Transmission Date: 20181010
  Serious: Yes (Other)
  Sender: FDA-Public Use
  Company Number: US-ASTELLAS-2018US022962

PATIENT
  Age: 68 Year
  Sex: Male

DRUGS (2)
  1. XTANDI [Suspect]
     Active Substance: ENZALUTAMIDE
     Route: 048
  2. XTANDI [Suspect]
     Active Substance: ENZALUTAMIDE
     Indication: HORMONE-REFRACTORY PROSTATE CANCER
     Route: 048
     Dates: start: 20180418

REACTIONS (15)
  - Skin disorder [Recovered/Resolved]
  - Hallucination [Recovered/Resolved]
  - Neuropathy peripheral [Unknown]
  - Musculoskeletal stiffness [Unknown]
  - Nausea [Unknown]
  - Muscle spasms [Unknown]
  - Dyspnoea [Unknown]
  - Asthenia [Unknown]
  - Peripheral swelling [Not Recovered/Not Resolved]
  - Joint stiffness [Unknown]
  - Swelling [Unknown]
  - Chills [Not Recovered/Not Resolved]
  - Headache [Unknown]
  - Weight increased [Unknown]
  - Hyperhidrosis [Unknown]

NARRATIVE: CASE EVENT DATE: 20180419
